FAERS Safety Report 9785501 (Version 1)
Quarter: 2013Q4

REPORT INFORMATION
  Report Type: Spontaneous
  Country: US (occurrence: None)
  Receive Date: 20131226
  Receipt Date: 20131226
  Transmission Date: 20140711
  Serious: Yes (Other)
  Sender: FDA-Public Use
  Company Number: None

PATIENT
  Age: 35 Year
  Sex: Male
  Weight: 72.58 kg

DRUGS (1)
  1. CHANTIX 1MG PFIZER [Suspect]
     Indication: SMOKING CESSATION THERAPY
     Dosage: 56 TABLETS
     Route: 048
     Dates: start: 20131001, end: 20131130

REACTIONS (3)
  - Alopecia [None]
  - Alopecia [None]
  - Stress [None]
